FAERS Safety Report 5879442-3 (Version None)
Quarter: 2008Q3

REPORT INFORMATION
  Report Type: 
  Country: None (occurrence: None)
  Receive Date: 20080912
  Receipt Date: 20080905
  Transmission Date: 20090109
  Serious: Yes (Life-Threatening)
  Sender: FDA-Public Use
  Company Number: B0536524A

PATIENT
  Age: 39 Year
  Sex: Female

DRUGS (7)
  1. AUGMENTIN '125' [Suspect]
     Indication: DRUG USE FOR UNKNOWN INDICATION
     Route: 042
     Dates: start: 20080723, end: 20080723
  2. ACETAMINOPHEN [Suspect]
     Indication: PAIN
     Route: 054
     Dates: start: 20080723
  3. DAFALGAN [Suspect]
     Indication: PAIN
     Route: 048
     Dates: start: 20080723, end: 20080725
  4. MORPHINE [Concomitant]
     Route: 040
     Dates: start: 20080723
  5. NOVALGIN [Concomitant]
     Route: 042
     Dates: start: 20080723
  6. PONSTAN [Concomitant]
     Dosage: 500MG AS REQUIRED
     Route: 048
     Dates: start: 20080724, end: 20080725
  7. PROPOFOL [Concomitant]
     Route: 065
     Dates: start: 20080723, end: 20080723

REACTIONS (7)
  - ACUTE HEPATIC FAILURE [None]
  - ALANINE AMINOTRANSFERASE INCREASED [None]
  - COAGULOPATHY [None]
  - ENCEPHALOPATHY [None]
  - HEPATIC ENCEPHALOPATHY [None]
  - HEPATIC FAILURE [None]
  - HEPATOCELLULAR INJURY [None]
